FAERS Safety Report 6221889-X (Version None)
Quarter: 2009Q2

REPORT INFORMATION
  Report Type: 
  Country: None (occurrence: None)
  Receive Date: 20090608
  Receipt Date: 20090608
  Transmission Date: 20091009
  Serious: No
  Sender: FDA-Public Use
  Company Number: None

PATIENT
  Sex: Female
  Weight: 52.1637 kg

DRUGS (2)
  1. CLARITIN [Suspect]
  2. ZYRTEC [Suspect]

REACTIONS (3)
  - CARDIAC DISORDER [None]
  - PALPITATIONS [None]
  - SOMNOLENCE [None]
